FAERS Safety Report 10705099 (Version 3)
Quarter: 2015Q2

REPORT INFORMATION
  Report Type: Spontaneous
  Country: JP (occurrence: JP)
  Receive Date: 20150112
  Receipt Date: 20150421
  Transmission Date: 20150821
  Serious: Yes (Other)
  Sender: FDA-Public Use
  Company Number: JP-009507513-1501JPN002626

PATIENT
  Age: 41 Year
  Sex: Female
  Weight: 42 kg

DRUGS (5)
  1. SILECE [Concomitant]
     Active Substance: FLUNITRAZEPAM
     Indication: SLEEP DISORDER
     Dosage: 0.5 MG, QD
     Route: 048
     Dates: start: 20141202, end: 20141214
  2. BELSOMRA [Suspect]
     Active Substance: SUVOREXANT
     Indication: SLEEP DISORDER
     Dosage: 20 MG, QD
     Route: 048
     Dates: start: 20141215, end: 20141218
  3. SILECE [Concomitant]
     Active Substance: FLUNITRAZEPAM
     Dosage: 1 MG, QD
     Route: 048
     Dates: start: 20141010, end: 20141201
  4. REMERON [Concomitant]
     Active Substance: MIRTAZAPINE
     Indication: DEPRESSION
     Dosage: 30 MG, QD
     Route: 048
     Dates: start: 20140315, end: 20150105
  5. LUNESTA [Concomitant]
     Active Substance: ESZOPICLONE
     Indication: SLEEP DISORDER
     Dosage: 2 MG, QD
     Route: 048
     Dates: start: 20140919, end: 20150119

REACTIONS (7)
  - Malaise [Recovered/Resolved]
  - Headache [Recovered/Resolved]
  - Depressed mood [Recovering/Resolving]
  - Hepatic function abnormal [Recovering/Resolving]
  - Hyperphagia [Recovered/Resolved]
  - Gallbladder polyp [Unknown]
  - Therapeutic response increased [Unknown]

NARRATIVE: CASE EVENT DATE: 201412
